FAERS Safety Report 5222898-X (Version None)
Quarter: 2007Q1

REPORT INFORMATION
  Report Type: 
  Country: None (occurrence: None)
  Receive Date: 20070123
  Receipt Date: 20070115
  Transmission Date: 20070707
  Serious: Yes (Hospitalization)
  Sender: FDA-Public Use
  Company Number: HQWYE734817JAN07

PATIENT
  Age: 20 Year
  Sex: Female

DRUGS (3)
  1. EFFEXOR [Suspect]
     Dosage: OVERDOSE AMOUNT WAS ^2250 MG^ ORAL
     Route: 048
     Dates: start: 20000101, end: 20000101
  2. ALCOHOL (ETHANOL, ) [Suspect]
     Dosage: ORAL
     Route: 048
     Dates: start: 20000101, end: 20000101
  3. ALPRAZOLAM [Suspect]
     Dosage: OVERDOSE AMOUNT 15 MG ORAL
     Route: 048
     Dates: start: 20000101, end: 20000101

REACTIONS (5)
  - BLOOD ALCOHOL INCREASED [None]
  - BRADYPNOEA [None]
  - COMA [None]
  - MYDRIASIS [None]
  - OVERDOSE [None]
